FAERS Safety Report 18641809 (Version 1)
Quarter: 2020Q4

REPORT INFORMATION
  Report Type: Spontaneous
  Country: US (occurrence: US)
  Receive Date: 20201221
  Receipt Date: 20201221
  Transmission Date: 20210114
  Serious: No
  Sender: FDA-Public Use
  Company Number: US-LUPIN PHARMACEUTICALS INC.-2020-10547

PATIENT
  Age: 6 Decade
  Sex: Female

DRUGS (10)
  1. BACLOFEN. [Concomitant]
     Active Substance: BACLOFEN
     Dosage: 10 MILLIGRAM
     Route: 048
  2. PREGABALIN. [Concomitant]
     Active Substance: PREGABALIN
     Indication: NEURALGIA
     Dosage: UNK
     Route: 065
  3. METHYLPREDNISOLONE. [Suspect]
     Active Substance: METHYLPREDNISOLONE
     Indication: STIFF PERSON SYNDROME
     Dosage: UNK
     Route: 042
  4. BACLOFEN. [Concomitant]
     Active Substance: BACLOFEN
     Indication: STIFF PERSON SYNDROME
     Dosage: 100 MICROGRAM, QD
     Route: 037
  5. DIAZEPAM. [Concomitant]
     Active Substance: DIAZEPAM
     Indication: STIFF PERSON SYNDROME
     Dosage: 5 MILLIGRAM
     Route: 048
  6. IMMUNE GLOBULIN [Concomitant]
     Indication: STIFF PERSON SYNDROME
     Dosage: UNK
     Route: 042
  7. GABAPENTIN. [Concomitant]
     Active Substance: GABAPENTIN
     Indication: NEURALGIA
     Dosage: UNK
     Route: 065
  8. TIZANIDINE. [Concomitant]
     Active Substance: TIZANIDINE
     Indication: STIFF PERSON SYNDROME
     Dosage: 6 MILLIGRAM
     Route: 048
  9. BACLOFEN. [Concomitant]
     Active Substance: BACLOFEN
     Dosage: 475.1 MICROGRAM, QD
     Route: 037
  10. PREDNISONE. [Suspect]
     Active Substance: PREDNISONE
     Indication: STIFF PERSON SYNDROME
     Dosage: UNK
     Route: 048

REACTIONS (1)
  - Epistaxis [Unknown]
